FAERS Safety Report 4723242-4 (Version None)
Quarter: 2005Q3

REPORT INFORMATION
  Report Type: 
  Country: None (occurrence: None)
  Receive Date: 20050719
  Receipt Date: 20040824
  Transmission Date: 20060218
  Serious: Yes (Hospitalization, Other)
  Sender: FDA-Public Use
  Company Number: 203610

PATIENT
  Age: 50 Year
  Sex: Male
  Weight: 89.3586 kg

DRUGS (4)
  1. AVONEX [Suspect]
     Indication: MULTIPLE SCLEROSIS
     Dosage: 30 US, QW; IM, 30 UG, QW; IM
     Route: 030
     Dates: start: 20010101, end: 20030101
  2. AVONEX [Suspect]
     Indication: MULTIPLE SCLEROSIS
     Dosage: 30 US, QW; IM, 30 UG, QW; IM
     Route: 030
     Dates: start: 20030101
  3. STOOL SOFTENER (NOS) [Concomitant]
  4. TRAZODONE [Concomitant]

REACTIONS (5)
  - CONVULSION [None]
  - DIZZINESS [None]
  - DRUG INEFFECTIVE [None]
  - INFLUENZA LIKE ILLNESS [None]
  - MULTIPLE SCLEROSIS [None]
